FAERS Safety Report 6915016-0 (Version None)
Quarter: 2010Q3

REPORT INFORMATION
  Report Type: 
  Country: None (occurrence: None)
  Receive Date: 20100809
  Receipt Date: 20100727
  Transmission Date: 20110219
  Serious: Yes (Other)
  Sender: FDA-Public Use
  Company Number: JP-ROCHE-719658

PATIENT
  Sex: Female
  Weight: 40 kg

DRUGS (14)
  1. TOCILIZUMAB [Suspect]
     Indication: RHEUMATOID ARTHRITIS
     Route: 041
     Dates: start: 20090526, end: 20090526
  2. TOCILIZUMAB [Suspect]
     Route: 041
     Dates: start: 20090623, end: 20090623
  3. TOCILIZUMAB [Suspect]
     Route: 041
     Dates: start: 20090721, end: 20090721
  4. TOCILIZUMAB [Suspect]
     Route: 041
     Dates: start: 20090818, end: 20090818
  5. TOCILIZUMAB [Suspect]
     Route: 041
     Dates: start: 20090905, end: 20090905
  6. TOCILIZUMAB [Suspect]
     Route: 041
     Dates: start: 20091013, end: 20091013
  7. TOCILIZUMAB [Suspect]
     Route: 041
     Dates: start: 20091117
  8. METHOTREXATE [Suspect]
     Indication: RHEUMATOID ARTHRITIS
     Route: 048
     Dates: end: 20091013
  9. PREDNISOLONE [Concomitant]
     Route: 048
     Dates: end: 20090721
  10. PREDNISOLONE [Concomitant]
     Route: 048
     Dates: start: 20090722
  11. SELBEX [Concomitant]
     Route: 048
  12. GASTER [Concomitant]
     Route: 048
  13. CELCOX [Concomitant]
     Route: 048
  14. ALENDRONATE SODIUM [Concomitant]
     Route: 048

REACTIONS (2)
  - CARDIAC FAILURE CONGESTIVE [None]
  - STOMATITIS [None]
